FAERS Safety Report 7137869-6 (Version None)
Quarter: 2010Q4

REPORT INFORMATION
  Report Type: 
  Country: None (occurrence: None)
  Receive Date: 20101103
  Receipt Date: 20100512
  Transmission Date: 20110411
  Serious: Yes (Hospitalization)
  Sender: FDA-Public Use
  Company Number: 2010S1000131

PATIENT
  Age: 59 Year
  Sex: Female
  Weight: 95.3 kg

DRUGS (16)
  1. CUBICIN [Suspect]
     Indication: OSTEOMYELITIS
     Dosage: 5.2 MG/KG;Q24H7IV
     Route: 042
     Dates: start: 20100203
  2. CUBICIN [Suspect]
     Indication: WOUND INFECTION
     Dosage: 5.2 MG/KG;Q24H7IV
     Route: 042
     Dates: start: 20100203
  3. CUBICIN [Suspect]
  4. CUBICIN [Suspect]
  5. CETIRIZINE HCL [Concomitant]
  6. HYDROCHLORIDE [Concomitant]
  7. LEVOFLOXACIN [Concomitant]
  8. CIPROFLOXACIN [Concomitant]
  9. ZYVOX [Concomitant]
  10. VERAPAMIL [Concomitant]
  11. ALISKIREN [Concomitant]
  12. PREMARIN PLUS [Concomitant]
  13. LYRICA [Concomitant]
  14. HYDROCODONE [Concomitant]
  15. PRILOSEC [Concomitant]
  16. TIZANIDINE HCL [Concomitant]

REACTIONS (1)
  - BLOOD CREATININE INCREASED [None]
